FAERS Safety Report 8669694 (Version 3)
Quarter: 2015Q3

REPORT INFORMATION
  Report Type: Report from Study
  Country: US (occurrence: US)
  Receive Date: 20120718
  Receipt Date: 20150917
  Transmission Date: 20151125
  Serious: Yes (Other)
  Sender: FDA-Public Use
  Company Number: US-AMGEN-USASP2012043656

PATIENT
  Age: 44 Year
  Sex: Female

DRUGS (1)
  1. ENBREL [Suspect]
     Active Substance: ETANERCEPT
     Indication: RHEUMATOID ARTHRITIS
     Dosage: 50 MG, QWK
     Route: 065
     Dates: start: 199901, end: 2010

REACTIONS (8)
  - Rheumatoid arthritis [Unknown]
  - Gait disturbance [Unknown]
  - Depressed mood [Unknown]
  - Candida infection [Unknown]
  - Surgery [Unknown]
  - Malaise [Unknown]
  - Injection site pain [Unknown]
  - Mental disorder [Unknown]

NARRATIVE: CASE EVENT DATE: 2004
